FAERS Safety Report 7630887 (Version 3)
Quarter: 2014Q1

REPORT INFORMATION
  Report Type: Spontaneous
  Country: FR (occurrence: FR)
  Receive Date: 20101015
  Receipt Date: 20140328
  Transmission Date: 20141002
  Serious: Yes (Death, Hospitalization)
  Sender: FDA-Public Use
  Company Number: FR-ROCHE-733068

PATIENT
  Sex: Male
  Weight: 80 kg

DRUGS (6)
  1. AVASTIN [Suspect]
     Indication: BRAIN NEOPLASM
     Dosage: CUMULATIVE DOSE: 3300 MG (LAST RECEIVED DOSE PRIOR TO EVENT: 800 MG)
     Route: 042
     Dates: start: 20090803, end: 20090914
  2. AVASTIN [Suspect]
     Indication: GLIOBLASTOMA
     Dosage: CUMULATIVE DOSE: 2280MG (LAST RECEIVED DOSE:760 MG)
     Route: 042
     Dates: start: 20091013, end: 20091109
  3. CAMPTO [Suspect]
     Indication: BRAIN NEOPLASM
     Dosage: CUMULATIVE DOSE:1000 MG AND LAST RECEIVED DOSE OF 250 MG BEFORE SAE
     Route: 042
     Dates: start: 20090803, end: 20090914
  4. CAMPTO [Suspect]
     Indication: GLIOBLASTOMA
  5. TEMODAL [Suspect]
     Indication: GLIOBLASTOMA
     Dosage: CUMULATIVE DOSE: 3625 MG (LAST RECIEV DOSE: 145 MG)
     Route: 048
     Dates: start: 20091013, end: 20091102
  6. PREDNISOLONE [Concomitant]
     Route: 065
     Dates: start: 200906

REACTIONS (5)
  - Gastrointestinal perforation [Fatal]
  - Haemorrhage [Fatal]
  - Large intestinal obstruction [Fatal]
  - Large intestine perforation [Recovered/Resolved with Sequelae]
  - Glioblastoma [Fatal]
